FAERS Safety Report 20516962 (Version 1)
Quarter: 2022Q1

REPORT INFORMATION
  Report Type: Other
  Country: DE (occurrence: DE)
  Receive Date: 20220225
  Receipt Date: 20220225
  Transmission Date: 20220424
  Serious: Yes (Other)
  Sender: FDA-Public Use
  Company Number: DE-MACLEODS PHARMACEUTICALS US LTD-MAC2022034492

PATIENT

DRUGS (5)
  1. TAMSULOSIN [Suspect]
     Active Substance: TAMSULOSIN
     Indication: Prostatic disorder
     Dosage: 1 DOSAGE FORM, QD (0-1-0-0)
     Route: 048
     Dates: start: 20220205, end: 20220206
  2. TAMSULOSIN [Suspect]
     Active Substance: TAMSULOSIN
     Indication: Micturition urgency
  3. LERCANIDIPINE [Concomitant]
     Active Substance: LERCANIDIPINE
     Indication: Hypertension
     Dosage: UNK (PERMANENT MEDICATION, START DATE: ON 2020)
     Route: 065
  4. ASPIRIN [Concomitant]
     Active Substance: ASPIRIN
     Indication: Hypertension
     Dosage: UNK, (PERMANENT MEDICATION, START DATE: ON 2020)
     Route: 065
  5. RAMIPRIL [Concomitant]
     Active Substance: RAMIPRIL
     Indication: Hypertension
     Dosage: UNK, (PERMANENT MEDICATION, START DATE: ON 2020)
     Route: 065

REACTIONS (2)
  - Cardiovascular disorder [Unknown]
  - Syncope [Recovered/Resolved]

NARRATIVE: CASE EVENT DATE: 20220205
